FAERS Safety Report 18619061 (Version 1)
Quarter: 2020Q4

REPORT INFORMATION
  Report Type: Report from Study
  Country: US (occurrence: US)
  Receive Date: 20201215
  Receipt Date: 20201215
  Transmission Date: 20210114
  Serious: Yes (Other)
  Sender: FDA-Public Use
  Company Number: US-JNJFOC-20201212381

PATIENT
  Sex: Female

DRUGS (3)
  1. STELARA [Suspect]
     Active Substance: USTEKINUMAB
     Indication: COLITIS ULCERATIVE
     Route: 058
  2. STELARA [Suspect]
     Active Substance: USTEKINUMAB
     Indication: COLITIS ULCERATIVE
     Route: 042
  3. STELARA [Suspect]
     Active Substance: USTEKINUMAB

REACTIONS (6)
  - Injection related reaction [Unknown]
  - Intestinal obstruction [Unknown]
  - Nausea [Unknown]
  - Dizziness [Unknown]
  - Muscle contracture [Unknown]
  - Back pain [Unknown]

NARRATIVE: CASE EVENT DATE: 2020
